FAERS Safety Report 16855243 (Version 1)
Quarter: 2019Q3

REPORT INFORMATION
  Report Type: Spontaneous
  Country: US (occurrence: US)
  Receive Date: 20190926
  Receipt Date: 20190926
  Transmission Date: 20191005
  Serious: No
  Sender: FDA-Public Use
  Company Number: US-BION-008154

PATIENT
  Sex: Female
  Weight: 100.24 kg

DRUGS (2)
  1. IBUPROFEN. [Concomitant]
     Active Substance: IBUPROFEN
     Indication: PAIN
  2. IMODIUM A-D [Suspect]
     Active Substance: LOPERAMIDE HYDROCHLORIDE
     Indication: FREQUENT BOWEL MOVEMENTS
     Route: 048

REACTIONS (3)
  - Dyschezia [Recovered/Resolved]
  - Product use in unapproved indication [Not Recovered/Not Resolved]
  - Frequent bowel movements [Recovered/Resolved]
